FAERS Safety Report 5290363-X (Version None)
Quarter: 2007Q2

REPORT INFORMATION
  Report Type: 
  Country: None (occurrence: None)
  Receive Date: 20070409
  Receipt Date: 20070328
  Transmission Date: 20071010
  Serious: Yes (Other)
  Sender: FDA-Public Use
  Company Number: ZA-AVENTIS-200712453GDDC

PATIENT
  Age: 33 Year
  Sex: Male

DRUGS (3)
  1. KETEK [Suspect]
     Indication: SINUSITIS
     Dosage: DOSE QUANTITY: 2
     Route: 048
     Dates: start: 20070208, end: 20070214
  2. DEMAZIN NS [Concomitant]
     Dosage: DOSE QUANTITY: 1
     Dates: start: 20070208, end: 20070212
  3. ZOLPIDEM [Concomitant]
     Indication: INSOMNIA
     Dosage: DOSE QUANTITY: 1
     Dates: start: 20070208, end: 20070214

REACTIONS (1)
  - HEPATIC ENZYME INCREASED [None]
